FAERS Safety Report 19658219 (Version 1)
Quarter: 2021Q3

REPORT INFORMATION
  Report Type: Spontaneous
  Country: FR (occurrence: FR)
  Receive Date: 20210805
  Receipt Date: 20210805
  Transmission Date: 20211014
  Serious: Yes (Hospitalization)
  Sender: FDA-Public Use
  Company Number: FR-SUN PHARMACEUTICAL INDUSTRIES LTD-2021RR-306710

PATIENT
  Age: 59 Year
  Sex: Female
  Weight: 72 kg

DRUGS (9)
  1. PREGABALINE [Concomitant]
     Active Substance: PREGABALIN
     Indication: PRODUCT USED FOR UNKNOWN INDICATION
     Dosage: UNK
     Route: 065
  2. KEYTRUDA [Suspect]
     Active Substance: PEMBROLIZUMAB
     Indication: MALIGNANT MELANOMA
     Dosage: 400 MILLIGRAM, UNK
     Route: 065
     Dates: start: 20210122, end: 20210122
  3. TAZOCILLINE [Suspect]
     Active Substance: PIPERACILLIN SODIUM\TAZOBACTAM SODIUM
     Indication: INFECTION
     Dosage: 6 GRAM, BID
     Route: 065
     Dates: start: 20210114, end: 20210202
  4. NEFOPAM (CHLORHYDRATE DE) [Concomitant]
     Active Substance: NEFOPAM HYDROCHLORIDE
     Indication: PRODUCT USED FOR UNKNOWN INDICATION
     Dosage: UNK
     Route: 065
  5. ZOPICLONE [Concomitant]
     Active Substance: ZOPICLONE
     Indication: PRODUCT USED FOR UNKNOWN INDICATION
     Dosage: UNK
     Route: 065
  6. KEYTRUDA [Suspect]
     Active Substance: PEMBROLIZUMAB
     Dosage: 400 MILLIGRAM, UNK
     Route: 065
     Dates: start: 20201207, end: 20201207
  7. PREGABALIN. [Suspect]
     Active Substance: PREGABALIN
     Indication: PRODUCT USED FOR UNKNOWN INDICATION
     Dosage: ()
     Route: 048
     Dates: start: 20201227, end: 20210206
  8. RACECADOTRIL [Concomitant]
     Active Substance: RACECADOTRIL
     Indication: PRODUCT USED FOR UNKNOWN INDICATION
     Dosage: UNK
     Route: 065
  9. VANCOMYCINE [Suspect]
     Active Substance: VANCOMYCIN
     Indication: INFECTION
     Dosage: 1 GRAM, BID
     Route: 065
     Dates: start: 20210111, end: 20210126

REACTIONS (2)
  - Acute kidney injury [Recovered/Resolved]
  - Eosinophilia [Recovered/Resolved]

NARRATIVE: CASE EVENT DATE: 20210122
